FAERS Safety Report 4654696-X (Version None)
Quarter: 2005Q2

REPORT INFORMATION
  Report Type: 
  Country: None (occurrence: None)
  Receive Date: 20050505
  Receipt Date: 20050505
  Transmission Date: 20051028
  Serious: Yes (Disabling)
  Sender: FDA-Public Use
  Company Number: None

PATIENT
  Age: 47 Year
  Sex: Female
  Weight: 63.5036 kg

DRUGS (2)
  1. FEMARA [Suspect]
     Indication: BREAST CANCER
     Dosage: 1 / DAY
     Dates: start: 20041001, end: 20050401
  2. FEMARA [Suspect]
     Indication: PROPHYLAXIS
     Dosage: 1 / DAY
     Dates: start: 20041001, end: 20050401

REACTIONS (4)
  - ARTHRALGIA [None]
  - DIFFICULTY IN WALKING [None]
  - HYPOAESTHESIA [None]
  - PAIN IN EXTREMITY [None]
